FAERS Safety Report 4883889-1 (Version None)
Quarter: 2006Q1

REPORT INFORMATION
  Report Type: 
  Country: None (occurrence: None)
  Receive Date: 20060118
  Receipt Date: 20060106
  Transmission Date: 20060701
  Serious: Yes (Death, Hospitalization)
  Sender: FDA-Public Use
  Company Number: FR-BRISTOL-MYERS SQUIBB COMPANY-13242250

PATIENT
  Age: 58 Year
  Sex: Male

DRUGS (6)
  1. VASTEN TABS [Suspect]
     Route: 048
  2. PREVISCAN [Interacting]
     Route: 048
  3. ALDACTONE [Concomitant]
     Route: 048
  4. FONZYLANE [Concomitant]
  5. XANAX [Concomitant]
     Route: 048
  6. COVERSYL [Concomitant]

REACTIONS (7)
  - CARDIAC ARREST [None]
  - CEREBRAL HAEMORRHAGE [None]
  - DRUG INTERACTION [None]
  - HYPERTENSION [None]
  - HYPOTENSION [None]
  - INTERNATIONAL NORMALISED RATIO INCREASED [None]
  - VENTRICULAR TACHYCARDIA [None]
